FAERS Safety Report 21357913 (Version 1)
Quarter: 2022Q3

REPORT INFORMATION
  Report Type: Spontaneous
  Country: US (occurrence: US)
  Receive Date: 20220921
  Receipt Date: 20220921
  Transmission Date: 20221027
  Serious: Yes (Other)
  Sender: FDA-Public Use
  Company Number: US-CHIESI-2021CHF05718

PATIENT
  Age: 52 Year
  Sex: Female

DRUGS (4)
  1. CLEVIPREX [Suspect]
     Active Substance: CLEVIDIPINE
     Indication: Hypertension
     Dosage: 2 MILLIGRAM, QH
     Route: 041
     Dates: start: 20210621, end: 20210621
  2. CLEVIPREX [Suspect]
     Active Substance: CLEVIDIPINE
     Dosage: 4 MILLIGRAM, QH
     Route: 041
     Dates: start: 20210621, end: 20210621
  3. CLEVIPREX [Suspect]
     Active Substance: CLEVIDIPINE
     Dosage: 6 MILLIGRAM, QH
     Route: 041
     Dates: start: 20210621, end: 20210621
  4. METOPROLOL [Concomitant]
     Active Substance: METOPROLOL
     Indication: Cardiac operation
     Dosage: UNK, BID
     Route: 048

REACTIONS (4)
  - Ventilation perfusion mismatch [Unknown]
  - Hypervolaemia [Unknown]
  - Oxygen saturation decreased [Unknown]
  - PO2 decreased [Unknown]

NARRATIVE: CASE EVENT DATE: 20210621
